FAERS Safety Report 21504284 (Version 1)
Quarter: 2022Q4

REPORT INFORMATION
  Report Type: Spontaneous
  Country: US (occurrence: None)
  Receive Date: 20221025
  Receipt Date: 20221025
  Transmission Date: 20230113
  Serious: Yes (Hospitalization)
  Sender: FDA-Public Use
  Company Number: None

PATIENT
  Age: 73 Year
  Sex: Female
  Weight: 109 kg

DRUGS (1)
  1. DAPSONE [Suspect]
     Active Substance: DAPSONE
     Indication: Pyoderma gangrenosum
     Dosage: FREQUENCY : TWICE A DAY;?
     Route: 048
     Dates: start: 20210801, end: 20220516

REACTIONS (4)
  - Acute respiratory failure [None]
  - Chronic obstructive pulmonary disease [None]
  - Atelectasis [None]
  - Methaemoglobinaemia [None]

NARRATIVE: CASE EVENT DATE: 20220516
